FAERS Safety Report 10924085 (Version 1)
Quarter: 2015Q1

REPORT INFORMATION
  Report Type: Spontaneous
  Country: US (occurrence: US)
  Receive Date: 20150318
  Receipt Date: 20150318
  Transmission Date: 20150721
  Serious: Yes (Other)
  Sender: FDA-Public Use
  Company Number: US-ASTRAZENECA-2011SE71892

PATIENT

DRUGS (27)
  1. MELOXICAM. [Concomitant]
     Active Substance: MELOXICAM
     Dates: end: 20050309
  2. ZYPREXA [Concomitant]
     Active Substance: OLANZAPINE
  3. HAOPERIDOL [Concomitant]
     Indication: MIGRAINE
  4. ETODOLAC. [Concomitant]
     Active Substance: ETODOLAC
     Dates: start: 20050602
  5. ZOMIG [Suspect]
     Active Substance: ZOLMITRIPTAN
     Route: 048
  6. ZELNORM [Concomitant]
     Active Substance: TEGASEROD MALEATE
  7. NAPROXEN SODIUM. [Concomitant]
     Active Substance: NAPROXEN SODIUM
  8. DEPACON [Concomitant]
     Active Substance: VALPROATE SODIUM
  9. TOPAMAX [Concomitant]
     Active Substance: TOPIRAMATE
  10. CELEBREX [Concomitant]
     Active Substance: CELECOXIB
  11. DURADRIN [Concomitant]
     Active Substance: ACETAMINOPHEN\DICHLORALPHENAZONE\ISOMETHEPTENE MUCATE
  12. KEPPRA [Concomitant]
     Active Substance: LEVETIRACETAM
  13. DEPAKOTE [Concomitant]
     Active Substance: DIVALPROEX SODIUM
  14. IMITREX [Concomitant]
     Active Substance: SUMATRIPTAN\SUMATRIPTAN SUCCINATE
  15. CLONAZWPAM [Concomitant]
  16. IBUPROFEN. [Concomitant]
     Active Substance: IBUPROFEN
  17. NABUMETONE. [Concomitant]
     Active Substance: NABUMETONE
     Dates: end: 20060618
  18. LYRICA [Concomitant]
     Active Substance: PREGABALIN
  19. LYRICA [Concomitant]
     Active Substance: PREGABALIN
  20. ZONEGRAN [Concomitant]
     Active Substance: ZONISAMIDE
  21. EXCEDRIN MIGRAINE [Concomitant]
     Active Substance: ACETAMINOPHEN\ASPIRIN\CAFFEINE
  22. TEMAZEPAM. [Concomitant]
     Active Substance: TEMAZEPAM
  23. ETODOLAC. [Concomitant]
     Active Substance: ETODOLAC
  24. MARGINAL [Concomitant]
     Indication: MIGRAINE
     Dosage: 4 MG/ML
  25. ZOFRAN [Concomitant]
     Active Substance: ONDANSETRON HYDROCHLORIDE
  26. ATROVENT [Concomitant]
     Active Substance: IPRATROPIUM BROMIDE
  27. THORAZINE [Concomitant]
     Active Substance: CHLORPROMAZINE
     Dates: end: 20150131

REACTIONS (3)
  - Rash [Unknown]
  - Chest discomfort [Unknown]
  - Throat tightness [Unknown]
